FAERS Safety Report 20373888 (Version 4)
Quarter: 2022Q4

REPORT INFORMATION
  Report Type: Other
  Country: JP (occurrence: JP)
  Receive Date: 20220125
  Receipt Date: 20221004
  Transmission Date: 20230113
  Serious: Yes (Hospitalization)
  Sender: FDA-Public Use
  Company Number: JP-CHUGAI-2022000566

PATIENT
  Age: 65 Year
  Sex: Male
  Weight: 67 kg

DRUGS (9)
  1. ATEZOLIZUMAB [Suspect]
     Active Substance: ATEZOLIZUMAB
     Indication: Small cell lung cancer extensive stage
     Dosage: 1200 MILLIGRAM
     Route: 041
     Dates: start: 20210224, end: 20210610
  2. CARBOPLATIN [Suspect]
     Active Substance: CARBOPLATIN
     Indication: Small cell lung cancer extensive stage
     Dosage: 600 MILLIGRAM, SINGLE
     Route: 041
     Dates: start: 20210224, end: 20210224
  3. CARBOPLATIN [Suspect]
     Active Substance: CARBOPLATIN
     Dosage: 480 MILLIGRAM, SINGLE
     Route: 041
     Dates: start: 20210317, end: 20210428
  4. ETOPOSIDE [Suspect]
     Active Substance: ETOPOSIDE
     Indication: Small cell lung cancer extensive stage
     Dosage: 172 MILLIGRAM
     Route: 065
     Dates: start: 20210224
  5. ETOPOSIDE [Suspect]
     Active Substance: ETOPOSIDE
     Dosage: 172 MILLIGRAM
     Route: 065
     Dates: start: 20210317, end: 20210430
  6. CARBOPLATIN [Concomitant]
     Active Substance: CARBOPLATIN
     Indication: Small cell lung cancer extensive stage
     Dosage: 600 MILLIGRAM, SINGLE
     Route: 041
     Dates: start: 20210224, end: 20210224
  7. CARBOPLATIN [Concomitant]
     Active Substance: CARBOPLATIN
     Dosage: 480 MILLIGRAM, SINGLE
     Route: 041
     Dates: start: 20210317, end: 20210428
  8. ETOPOSIDE [Concomitant]
     Active Substance: ETOPOSIDE
     Indication: Small cell lung cancer extensive stage
     Dosage: 172 MILLIGRAM
     Route: 065
     Dates: start: 20210224
  9. ETOPOSIDE [Concomitant]
     Active Substance: ETOPOSIDE
     Dosage: 172 MILLIGRAM
     Route: 065
     Dates: start: 20210317, end: 20210430

REACTIONS (4)
  - Neutrophil count decreased [Recovered/Resolved]
  - Platelet count decreased [Recovering/Resolving]
  - Constipation [Recovering/Resolving]
  - Nausea [Recovering/Resolving]

NARRATIVE: CASE EVENT DATE: 20210227
